FAERS Safety Report 7064931-9 (Version None)
Quarter: 2010Q4

REPORT INFORMATION
  Report Type: 
  Country: None (occurrence: None)
  Receive Date: 20101022
  Receipt Date: 20101022
  Transmission Date: 20110411
  Serious: Yes (Other)
  Sender: FDA-Public Use
  Company Number: None

PATIENT
  Age: 33 Year
  Sex: Male
  Weight: 74.8435 kg

DRUGS (3)
  1. OXYCONTIN [Suspect]
     Indication: MULTIPLE SCLEROSIS
     Dosage: 30 MG X 2 TID PO
     Route: 048
     Dates: start: 20071101, end: 20100930
  2. OXYCONTIN [Suspect]
     Indication: MYOFASCIAL PAIN SYNDROME
     Dosage: 30 MG X 2 TID PO
     Route: 048
     Dates: start: 20071101, end: 20100930
  3. OXYCONTIN [Suspect]
     Indication: PAIN
     Dosage: 30 MG X 2 TID PO
     Route: 048
     Dates: start: 20071101, end: 20100930

REACTIONS (10)
  - ABDOMINAL PAIN UPPER [None]
  - DEVICE INEFFECTIVE [None]
  - FEELING ABNORMAL [None]
  - FOREIGN BODY [None]
  - GASTRIC DISORDER [None]
  - HEADACHE [None]
  - MUSCLE SPASMS [None]
  - NAUSEA [None]
  - PRODUCT QUALITY ISSUE [None]
  - PRODUCT SUBSTITUTION ISSUE [None]
